FAERS Safety Report 4359025-7 (Version None)
Quarter: 2004Q2

REPORT INFORMATION
  Report Type: 
  Country: None (occurrence: None)
  Receive Date: 20040517
  Receipt Date: 20040512
  Transmission Date: 20050107
  Serious: Yes (Congenital Anomaly, Other)
  Sender: FDA-Public Use
  Company Number: US-GLAXOSMITHKLINE-A0510559A

PATIENT
  Sex: Male

DRUGS (3)
  1. LAMICTAL [Suspect]
     Indication: BIPOLAR DISORDER
     Dosage: 225MG PER DAY
     Dates: start: 20031001
  2. LAMICTAL [Suspect]
     Dosage: 225MG PER DAY
     Dates: start: 20040401
  3. CELEXA [Concomitant]
     Dosage: 20MG PER DAY

REACTIONS (3)
  - CLEFT PALATE [None]
  - DRUG EXPOSURE DURING PREGNANCY [None]
  - WEIGHT GAIN POOR [None]
